FAERS Safety Report 5118153-9 (Version None)
Quarter: 2006Q4

REPORT INFORMATION
  Report Type: 
  Country: None (occurrence: None)
  Receive Date: 20061002
  Receipt Date: 20060921
  Transmission Date: 20070319
  Serious: Yes (Hospitalization)
  Sender: FDA-Public Use
  Company Number: DE-JNJFOC-20060905673

PATIENT
  Age: 6 Decade
  Sex: Male

DRUGS (5)
  1. RISPERDAL [Suspect]
     Route: 048
  2. RISPERDAL [Suspect]
     Indication: DRUG USE FOR UNKNOWN INDICATION
     Dosage: 4-6MG
     Route: 048
  3. FLUANXOL [Interacting]
     Indication: DRUG USE FOR UNKNOWN INDICATION
     Route: 048
  4. XANEF [Concomitant]
     Route: 065
  5. TOREM [Concomitant]
     Route: 065

REACTIONS (2)
  - BUNDLE BRANCH BLOCK RIGHT [None]
  - DRUG INTERACTION [None]
